FAERS Safety Report 11685227 (Version 2)
Quarter: 2016Q2

REPORT INFORMATION
  Report Type: Report from Study
  Country: US (occurrence: US)
  Receive Date: 20151030
  Receipt Date: 20160516
  Transmission Date: 20160815
  Serious: No
  Sender: FDA-Public Use
  Company Number: US-AMGEN-USASL2015111670

PATIENT
  Age: 57 Year
  Sex: Male

DRUGS (1)
  1. ENBREL [Suspect]
     Active Substance: ETANERCEPT
     Indication: RHEUMATOID ARTHRITIS
     Dosage: 50 MG, WEEKLY
     Route: 065
     Dates: start: 200202

REACTIONS (9)
  - Joint crepitation [Unknown]
  - Fatigue [Unknown]
  - Pain [Unknown]
  - Depressed mood [Unknown]
  - Arthralgia [Unknown]
  - Finger deformity [Unknown]
  - Arthritis [Unknown]
  - Pain in extremity [Unknown]
  - Swelling [Unknown]
